FAERS Safety Report 5428684-X (Version None)
Quarter: 2007Q3

REPORT INFORMATION
  Report Type: 
  Country: None (occurrence: None)
  Receive Date: 20070827
  Receipt Date: 20070815
  Transmission Date: 20080115
  Serious: Yes (Hospitalization)
  Sender: FDA-Public Use
  Company Number: 236819K07USA

PATIENT
  Age: 57 Year
  Sex: Female
  Weight: 61.2356 kg

DRUGS (8)
  1. REBIF [Suspect]
     Indication: MULTIPLE SCLEROSIS
     Dosage: 44 MCG, 3 IN 1 WEEKS, SUBCUTANEOUS
     Route: 058
     Dates: start: 20060626
  2. CARDIZEM CD [Concomitant]
  3. LIORESAL [Concomitant]
  4. ARICEPT [Concomitant]
  5. VALIUM [Concomitant]
  6. TEGRETOL [Concomitant]
  7. SYMMETREL [Concomitant]
  8. PROTONIX [Concomitant]

REACTIONS (2)
  - CEREBROVASCULAR ACCIDENT [None]
  - FALL [None]
